FAERS Safety Report 24673769 (Version 2)
Quarter: 2025Q3

REPORT INFORMATION
  Report Type: Spontaneous
  Country: US (occurrence: US)
  Receive Date: 20241128
  Receipt Date: 20250809
  Transmission Date: 20251020
  Serious: Yes (Other)
  Sender: ALEXION PHARMACEUTICALS
  Company Number: US-ASTRAZENECA-202410USA028942US

PATIENT
  Age: 71 Year
  Sex: Male
  Weight: 102.49 kg

DRUGS (8)
  1. OMEPRAZOLE [Suspect]
     Active Substance: OMEPRAZOLE
  2. CABAZITAXEL [Suspect]
     Active Substance: CABAZITAXEL
     Indication: Prostate cancer
     Dosage: UNK UNK, Q2W
     Dates: start: 20241007
  3. CARBOPLATIN [Suspect]
     Active Substance: CARBOPLATIN
     Indication: Prostate cancer
     Dosage: 3 MILLIGRAM PER MILLILITRE Q3W
     Dates: start: 20240923
  4. AMLODIPINE [Concomitant]
     Active Substance: AMLODIPINE BESYLATE
  5. GABAPENTIN [Suspect]
     Active Substance: GABAPENTIN
  6. LORAZEPAM [Suspect]
     Active Substance: LORAZEPAM
  7. ONDANSETRON [Suspect]
     Active Substance: ONDANSETRON
  8. ELIGARD [Suspect]
     Active Substance: LEUPROLIDE ACETATE

REACTIONS (3)
  - Syncope [Unknown]
  - Atrial fibrillation [Unknown]
  - Rash [Unknown]
